FAERS Safety Report 17262703 (Version 1)
Quarter: 2020Q1

REPORT INFORMATION
  Report Type: Spontaneous
  Country: ES (occurrence: ES)
  Receive Date: 20200113
  Receipt Date: 20200113
  Transmission Date: 20200409
  Serious: Yes (Hospitalization)
  Sender: FDA-Public Use
  Company Number: ES-TEVA-2020-ES-1166807

PATIENT
  Age: 82 Year
  Sex: Female

DRUGS (1)
  1. FENTANILO [Suspect]
     Active Substance: FENTANYL
     Route: 065
     Dates: start: 20181008

REACTIONS (1)
  - Encephalopathy [Recovered/Resolved]

NARRATIVE: CASE EVENT DATE: 20190918
